FAERS Safety Report 24434799 (Version 3)
Quarter: 2025Q2

REPORT INFORMATION
  Report Type: Report from Study
  Country: US (occurrence: US)
  Receive Date: 20241014
  Receipt Date: 20250506
  Transmission Date: 20250717
  Serious: No
  Sender: AMGEN
  Company Number: US-AMGEN-USASP2024200132

PATIENT
  Age: 57 Year
  Sex: Female

DRUGS (6)
  1. KRYSTEXXA [Suspect]
     Active Substance: PEGLOTICASE
     Indication: Gout
     Dosage: UNK, Q2WK (EVERY 2 WEEKS)
     Route: 042
     Dates: start: 20241008
  2. KRYSTEXXA [Suspect]
     Active Substance: PEGLOTICASE
     Dosage: UNK, Q2WK (EVERY 2 WEEKS)
     Route: 042
     Dates: start: 20241021
  3. MYCOPHENOLIC ACID [Suspect]
     Active Substance: MYCOPHENOLIC ACID
     Indication: Gout
     Route: 065
  4. ALLOPURINOL [Suspect]
     Active Substance: ALLOPURINOL
     Indication: Gout
     Route: 065
     Dates: start: 20241007
  5. BENADRYL [Concomitant]
     Active Substance: DIPHENHYDRAMINE HYDROCHLORIDE
     Indication: Premedication
     Route: 042
  6. BENADRYL [Concomitant]
     Active Substance: DIPHENHYDRAMINE HYDROCHLORIDE
     Indication: Pharyngeal swelling

REACTIONS (4)
  - Oropharyngeal discomfort [Unknown]
  - Anxiety [Unknown]
  - Nasal congestion [Unknown]
  - Hepatic enzyme increased [Unknown]

NARRATIVE: CASE EVENT DATE: 20241001
